FAERS Safety Report 10744428 (Version 1)
Quarter: 2015Q1

REPORT INFORMATION
  Report Type: Spontaneous
  Country: TN (occurrence: TN)
  Receive Date: 20150128
  Receipt Date: 20150128
  Transmission Date: 20150721
  Serious: Yes (Hospitalization, Other)
  Sender: FDA-Public Use
  Company Number: TN-BAYER-2015-011822

PATIENT
  Age: 32 Year
  Sex: Female

DRUGS (1)
  1. JASMINE [Suspect]
     Active Substance: DROSPIRENONE\ETHINYL ESTRADIOL
     Indication: CONTRACEPTION
     Dosage: UNK
     Route: 048
     Dates: start: 2013

REACTIONS (3)
  - Dyspnoea [Not Recovered/Not Resolved]
  - Pulmonary hypertension [None]
  - Pulmonary embolism [Not Recovered/Not Resolved]

NARRATIVE: CASE EVENT DATE: 20150113
